FAERS Safety Report 11042384 (Version 1)
Quarter: 2015Q2

REPORT INFORMATION
  Report Type: Spontaneous
  Country: US (occurrence: US)
  Receive Date: 20150416
  Receipt Date: 20150416
  Transmission Date: 20150821
  Serious: No
  Sender: FDA-Public Use
  Company Number: US-009507513-1504USA002847

PATIENT
  Sex: Female

DRUGS (1)
  1. MOMETASONE FUROATE (ORAL) [Suspect]
     Active Substance: MOMETASONE FUROATE
     Indication: PSORIASIS
     Route: 048

REACTIONS (1)
  - Exposure during pregnancy [Unknown]
